FAERS Safety Report 26053126 (Version 1)
Quarter: 2025Q4

REPORT INFORMATION
  Report Type: Report from Study
  Country: ZA (occurrence: ZA)
  Receive Date: 20251117
  Receipt Date: 20251117
  Transmission Date: 20260117
  Serious: Yes (Other)
  Sender: ROCHE
  Company Number: ZA-ROCHE-10000127098

PATIENT
  Age: 38 Year
  Sex: Female
  Weight: 60 kg

DRUGS (1)
  1. OCREVUS [Suspect]
     Active Substance: OCRELIZUMAB
     Indication: Multiple sclerosis
     Dosage: THEREAFTER 600MG EVERY AFTER 6 MONTHS
     Route: 042
     Dates: start: 20241104

REACTIONS (4)
  - Multiple sclerosis [Unknown]
  - Demyelination [Unknown]
  - Body temperature increased [Recovered/Resolved]
  - Fatigue [Recovered/Resolved]

NARRATIVE: CASE EVENT DATE: 20241104
